FAERS Safety Report 5766323-9 (Version None)
Quarter: 2008Q2

REPORT INFORMATION
  Report Type: 
  Country: None (occurrence: None)
  Receive Date: 20080605
  Receipt Date: 20080520
  Transmission Date: 20081010
  Serious: Yes (Hospitalization)
  Sender: FDA-Public Use
  Company Number: 2008EU000971

PATIENT
  Age: 37 Year
  Sex: Female
  Weight: 43 kg

DRUGS (6)
  1. PROGRAF [Suspect]
     Dosage: ORAL
     Route: 048
     Dates: start: 20061101, end: 20070212
  2. VORICONAZOLE (VORICONAZOLE) [Concomitant]
  3. RANITIDINE [Concomitant]
  4. FOLIC ACID [Concomitant]
  5. ARANESP [Concomitant]
  6. CLINOMEL (GLUCOSE, ELECTROLYTES NOS, AMINO ACIDS NOS, LIPIDS NOS, CALC [Concomitant]

REACTIONS (3)
  - HAEMOLYSIS [None]
  - PANCYTOPENIA [None]
  - THROMBOTIC THROMBOCYTOPENIC PURPURA [None]
